FAERS Safety Report 15456978 (Version 1)
Quarter: 2018Q4

REPORT INFORMATION
  Report Type: Spontaneous
  Country: GB (occurrence: GB)
  Receive Date: 20181002
  Receipt Date: 20181002
  Transmission Date: 20190204
  Serious: Yes (Hospitalization, Other)
  Sender: FDA-Public Use
  Company Number: GB-MYLANLABS-2018M1071834

PATIENT

DRUGS (7)
  1. PAMIDRONATE [Suspect]
     Active Substance: PAMIDRONATE DISODIUM
     Indication: BONE LESION
     Dosage: UNK
     Route: 065
  2. TEMOZOLOMIDE. [Suspect]
     Active Substance: TEMOZOLOMIDE
     Indication: PRODUCT USED FOR UNKNOWN INDICATION
     Dosage: UNK
     Route: 065
  3. ETOPOSIDE. [Suspect]
     Active Substance: ETOPOSIDE
     Indication: PRODUCT USED FOR UNKNOWN INDICATION
     Dosage: UNK
     Route: 065
  4. EVEROLIMUS. [Suspect]
     Active Substance: EVEROLIMUS
     Indication: PRODUCT USED FOR UNKNOWN INDICATION
     Dosage: UNK
     Route: 065
  5. CAPECITABINE. [Suspect]
     Active Substance: CAPECITABINE
     Indication: PRODUCT USED FOR UNKNOWN INDICATION
     Dosage: UNK
     Route: 065
  6. CARBOPLATIN. [Suspect]
     Active Substance: CARBOPLATIN
     Indication: PRODUCT USED FOR UNKNOWN INDICATION
     Dosage: UNK
     Route: 065
  7. TEMOZOLOMIDE. [Suspect]
     Active Substance: TEMOZOLOMIDE
     Dosage: UNK
     Route: 065

REACTIONS (26)
  - Pelvic mass [Unknown]
  - 5-hydroxyindolacetic acid increased [Unknown]
  - Chest pain [Unknown]
  - Bone pain [Recovering/Resolving]
  - Pain [Unknown]
  - Urticaria [Unknown]
  - Bronchial carcinoma [Unknown]
  - Borderline ovarian tumour [Unknown]
  - Pulmonary hilum mass [Unknown]
  - Cough [Unknown]
  - Lower respiratory tract infection [Unknown]
  - Pruritus generalised [Unknown]
  - Thyroid disorder [Unknown]
  - Spinal pain [Unknown]
  - Blood gastrin increased [Unknown]
  - Metastases to liver [Unknown]
  - Metastases to bone [Unknown]
  - Ovarian cancer [Unknown]
  - Hyperplasia [Unknown]
  - Pulmonary mass [Unknown]
  - Back pain [Unknown]
  - Bone loss [Unknown]
  - Metastases to spine [Unknown]
  - Mobility decreased [Recovering/Resolving]
  - Neuroendocrine tumour [Unknown]
  - Dyspnoea [Recovering/Resolving]

NARRATIVE: CASE EVENT DATE: 201407
